FAERS Safety Report 8901940 (Version 1)
Quarter: 2012Q4

REPORT INFORMATION
  Report Type: Spontaneous
  Country: US (occurrence: None)
  Receive Date: 20121109
  Receipt Date: 20121109
  Transmission Date: 20130627
  Serious: Yes (Life-Threatening)
  Sender: FDA-Public Use
  Company Number: None

PATIENT
  Age: 50 Year
  Sex: Female
  Weight: 65.77 kg

DRUGS (1)
  1. LISINOPRIL 10MG LUPIN [Suspect]
     Indication: BLOOD PRESSURE HIGH
     Route: 048
     Dates: start: 20121105, end: 20121106

REACTIONS (2)
  - Gastrointestinal disorder [None]
  - Swelling [None]
